FAERS Safety Report 9303330 (Version 4)
Quarter: 2013Q3

REPORT INFORMATION
  Report Type: Spontaneous
  Country: US (occurrence: US)
  Receive Date: 20130522
  Receipt Date: 20130724
  Transmission Date: 20140515
  Serious: Yes (Other)
  Sender: FDA-Public Use
  Company Number: US-PFIZER INC-2013153819

PATIENT
  Age: 30 Year
  Sex: Female
  Weight: 77.1 kg

DRUGS (2)
  1. DEPO-PROVERA [Suspect]
     Indication: CONTRACEPTION
     Dosage: 150 MG, IN EVERY 10-13 WEEKS
     Route: 030
     Dates: start: 20120920, end: 20130117
  2. MEDROXYPROGESTERONE ACETATE [Suspect]
     Indication: CONTRACEPTION
     Dosage: 150 MG, (EVERY 3 MONTHS)
     Route: 030
     Dates: start: 20121217, end: 20130117

REACTIONS (2)
  - Drug ineffective [Unknown]
  - Unintended pregnancy [Unknown]
